FAERS Safety Report 7904671-4 (Version None)
Quarter: 2011Q4

REPORT INFORMATION
  Report Type: 
  Country: None (occurrence: None)
  Receive Date: 20111109
  Receipt Date: 20111102
  Transmission Date: 20120403
  Serious: Yes (Death)
  Sender: FDA-Public Use
  Company Number: US-GLAXOSMITHKLINE-A0952390A

PATIENT
  Age: 58 Year
  Sex: Female

DRUGS (12)
  1. JUICE PLUS [Concomitant]
  2. GEMZAR [Concomitant]
  3. IXEMPRA KIT [Concomitant]
  4. VIT A [Concomitant]
  5. FIBER [Concomitant]
  6. IRON [Concomitant]
  7. VIT C [Concomitant]
  8. VITAMIN D [Concomitant]
  9. TYKERB [Suspect]
     Dosage: 1250MG PER DAY
     Route: 048
     Dates: start: 20080525
  10. HERPECIN-L [Concomitant]
  11. THYROID TAB [Concomitant]
  12. COENZYME Q10 [Concomitant]

REACTIONS (1)
  - DEATH [None]
